FAERS Safety Report 15715628 (Version 5)
Quarter: 2019Q1

REPORT INFORMATION
  Report Type: Report from Study
  Country: US (occurrence: US)
  Receive Date: 20181212
  Receipt Date: 20190327
  Transmission Date: 20190417
  Serious: Yes (Hospitalization, Other)
  Sender: FDA-Public Use
  Company Number: US-GILEAD-2018-0379918

PATIENT
  Age: 43 Year
  Sex: Female

DRUGS (4)
  1. SILDENAFIL CITRATE. [Concomitant]
     Active Substance: SILDENAFIL CITRATE
  2. AMBRISENTAN [Suspect]
     Active Substance: AMBRISENTAN
     Indication: PRODUCT USED FOR UNKNOWN INDICATION
     Dosage: 5 MG, QD
     Route: 065
     Dates: start: 20181026
  3. AMBRISENTAN [Suspect]
     Active Substance: AMBRISENTAN
     Dosage: 10 MG, QD
     Route: 065
     Dates: start: 20181026
  4. ELIQUIS [Concomitant]
     Active Substance: APIXABAN

REACTIONS (12)
  - Drug ineffective [Unknown]
  - Fatigue [Not Recovered/Not Resolved]
  - Vaginal haemorrhage [Unknown]
  - Renal impairment [Unknown]
  - Pulmonary oedema [Not Recovered/Not Resolved]
  - Dizziness [Unknown]
  - Rash [Not Recovered/Not Resolved]
  - Device related infection [Unknown]
  - Hysterectomy [Unknown]
  - Hypotension [Unknown]
  - Dyspnoea [Not Recovered/Not Resolved]
  - Reproductive tract disorder [Not Recovered/Not Resolved]

NARRATIVE: CASE EVENT DATE: 201810
